FAERS Safety Report 8270929-5 (Version None)
Quarter: 2012Q2

REPORT INFORMATION
  Report Type: 
  Country: None (occurrence: None)
  Receive Date: 20120410
  Receipt Date: 20120405
  Transmission Date: 20120825
  Serious: Yes (Other)
  Sender: FDA-Public Use
  Company Number: US-PFIZER INC-2012086748

PATIENT
  Sex: Female
  Weight: 74.83 kg

DRUGS (2)
  1. ADVIL PM [Suspect]
     Indication: SLEEP DISORDER
  2. ADVIL PM [Suspect]
     Indication: SINUS HEADACHE
     Dosage: 200 MG, 1X/DAY
     Route: 048
     Dates: start: 20120301, end: 20120301

REACTIONS (17)
  - OROPHARYNGEAL PAIN [None]
  - LIP BLISTER [None]
  - PURULENT DISCHARGE [None]
  - APHAGIA [None]
  - ERYTHEMA [None]
  - OROPHARYNGEAL BLISTERING [None]
  - PRURITUS GENERALISED [None]
  - ORAL PAIN [None]
  - EYE PRURITUS [None]
  - SWELLING FACE [None]
  - VISION BLURRED [None]
  - HYPERSENSITIVITY [None]
  - EYE SWELLING [None]
  - VISUAL IMPAIRMENT [None]
  - OCULAR HYPERAEMIA [None]
  - BLISTER [None]
  - URTICARIA [None]
